FAERS Safety Report 23643135 (Version 1)
Quarter: 2024Q1

REPORT INFORMATION
  Report Type: Spontaneous
  Country: EG (occurrence: EG)
  Receive Date: 20240318
  Receipt Date: 20240318
  Transmission Date: 20240409
  Serious: Yes (Other)
  Sender: FDA-Public Use
  Company Number: EG-AstraZeneca-2024A063134

PATIENT

DRUGS (5)
  1. GOSERELIN [Suspect]
     Active Substance: GOSERELIN
     Indication: Breast cancer
     Dosage: 10.8 MILLIGRAM, EVERY THREE MONTHS
     Route: 058
     Dates: start: 20231113
  2. ZOLADEX [Suspect]
     Active Substance: GOSERELIN ACETATE
     Indication: Breast cancer
     Dosage: UNK
     Route: 065
  3. FASLODEX [Suspect]
     Active Substance: FULVESTRANT
     Indication: Breast cancer
     Dosage: 250 MILLIGRAM, EVERY 4 WEEKS
     Route: 030
     Dates: start: 20240116
  4. IBRANCE [Suspect]
     Active Substance: PALBOCICLIB
     Indication: Product used for unknown indication
     Dosage: 125 MILLIGRAM, QD
     Route: 048
  5. ZOLEDRONIC ACID [Suspect]
     Active Substance: ZOLEDRONIC ACID
     Indication: Product used for unknown indication
     Dosage: 4 MILLIGRAM,  EVERY THREE MONTHS
     Route: 042
     Dates: start: 20240116

REACTIONS (1)
  - Neutropenia [Unknown]

NARRATIVE: CASE EVENT DATE: 20240210
